FAERS Safety Report 5402848-3 (Version None)
Quarter: 2007Q3

REPORT INFORMATION
  Report Type: 
  Country: None (occurrence: None)
  Receive Date: 20070730
  Receipt Date: 20070716
  Transmission Date: 20080115
  Serious: Yes (Other)
  Sender: FDA-Public Use
  Company Number: 2007327305

PATIENT
  Sex: Male
  Weight: 81.6 kg

DRUGS (5)
  1. BENADRYL [Suspect]
     Dosage: QD, ORAL
     Route: 048
  2. DEPAKOTE [Concomitant]
  3. LIPITOR [Concomitant]
  4. RISPERDAL [Concomitant]
  5. LOPID [Concomitant]

REACTIONS (8)
  - DEPRESSION [None]
  - HALLUCINATION, AUDITORY [None]
  - HOMICIDAL IDEATION [None]
  - INSOMNIA [None]
  - SCHIZOPHRENIA [None]
  - SELF INJURIOUS BEHAVIOUR [None]
  - THINKING ABNORMAL [None]
  - TINNITUS [None]
